FAERS Safety Report 5757080-0 (Version None)
Quarter: 2008Q2

REPORT INFORMATION
  Report Type: 
  Country: None (occurrence: None)
  Receive Date: 20080603
  Receipt Date: 20080522
  Transmission Date: 20081010
  Serious: Yes (Other)
  Sender: FDA-Public Use
  Company Number: B0522579A

PATIENT
  Age: 63 Year
  Sex: Male

DRUGS (2)
  1. SERETIDE [Suspect]
     Indication: ASTHMA
     Dosage: 1PUFF TWICE PER DAY
     Route: 055
     Dates: start: 20040301, end: 20080501
  2. ZYRTEC [Concomitant]
     Route: 065

REACTIONS (4)
  - BLOOD TESTOSTERONE DECREASED [None]
  - BODY HEIGHT DECREASED [None]
  - LYMPHOPENIA [None]
  - OSTEOPOROSIS [None]
